FAERS Safety Report 10227645 (Version 4)
Quarter: 2014Q4

REPORT INFORMATION
  Report Type: Spontaneous
  Country: US (occurrence: None)
  Receive Date: 20140606
  Receipt Date: 20141107
  Transmission Date: 20150528
  Serious: Yes (Death, Hospitalization)
  Sender: FDA-Public Use
  Company Number: UNT-2014-001381

PATIENT
  Age: 19 Year
  Sex: Male
  Weight: 62.1 kg

DRUGS (3)
  1. REMODULIN [Suspect]
     Active Substance: TREPROSTINIL
     Indication: COR PULMONALE CHRONIC
     Dosage: 0.128 UG/KG/MIN, CONTINUING
     Route: 041
     Dates: start: 20120119
  2. WARFARIN (WARFARIN) [Concomitant]
     Active Substance: WARFARIN
  3. LETAIRIS [Concomitant]
     Active Substance: AMBRISENTAN

REACTIONS (2)
  - Pulmonary hypertension [None]
  - Terminal state [None]

NARRATIVE: CASE EVENT DATE: 20140523
